FAERS Safety Report 20819480 (Version 2)
Quarter: 2022Q2

REPORT INFORMATION
  Report Type: Spontaneous
  Country: US (occurrence: US)
  Receive Date: 20220512
  Receipt Date: 20220524
  Transmission Date: 20220720
  Serious: No
  Sender: FDA-Public Use
  Company Number: US-BAUSCH-BL-2022-011093

PATIENT
  Age: 57 Year
  Sex: Male
  Weight: 90.800 kg

DRUGS (3)
  1. LUMIFY [Suspect]
     Active Substance: BRIMONIDINE TARTRATE
     Indication: Ocular hyperaemia
     Route: 047
     Dates: start: 20220415, end: 20220415
  2. LUMIFY [Suspect]
     Active Substance: BRIMONIDINE TARTRATE
  3. TYLENOL [Concomitant]
     Active Substance: ACETAMINOPHEN
     Indication: Product used for unknown indication
     Dosage: AS NEEDED
     Route: 048

REACTIONS (6)
  - Instillation site foreign body sensation [Recovered/Resolved]
  - Instillation site dryness [Recovered/Resolved]
  - Instillation site pain [Recovered/Resolved]
  - Instillation site discharge [Recovered/Resolved]
  - Instillation site erythema [Recovered/Resolved]
  - Conjunctivitis [Recovered/Resolved]

NARRATIVE: CASE EVENT DATE: 20220101
